FAERS Safety Report 8606093-X (Version None)
Quarter: 2012Q3

REPORT INFORMATION
  Report Type: 
  Country: None (occurrence: None)
  Receive Date: 20120820
  Receipt Date: 20120813
  Transmission Date: 20120928
  Serious: Yes (Other)
  Sender: FDA-Public Use
  Company Number: US-PFIZER INC-2012155153

PATIENT
  Sex: Female

DRUGS (1)
  1. CHAPSTICK CLASSIC [Suspect]
     Dosage: UNK
     Dates: start: 20120627

REACTIONS (3)
  - PHARYNGITIS STREPTOCOCCAL [None]
  - RASH [None]
  - URTICARIA [None]
